FAERS Safety Report 5662943-0 (Version None)
Quarter: 2008Q1

REPORT INFORMATION
  Report Type: 
  Country: None (occurrence: None)
  Receive Date: 20080307
  Receipt Date: 20080225
  Transmission Date: 20080703
  Serious: Yes (Hospitalization)
  Sender: FDA-Public Use
  Company Number: 2008BI000870

PATIENT
  Age: 46 Year
  Sex: Female

DRUGS (2)
  1. TYSABRI [Suspect]
     Indication: MULTIPLE SCLEROSIS
     Dosage: 63 ML; IV
     Route: 042
     Dates: start: 20080108, end: 20080108
  2. AVONEX [Concomitant]

REACTIONS (9)
  - CHEST DISCOMFORT [None]
  - EYE IRRITATION [None]
  - HEADACHE [None]
  - HYPOAESTHESIA FACIAL [None]
  - PARAESTHESIA ORAL [None]
  - PRURITUS [None]
  - RASH ERYTHEMATOUS [None]
  - RASH MACULAR [None]
  - URTICARIA [None]
